FAERS Safety Report 25220728 (Version 1)
Quarter: 2025Q2

REPORT INFORMATION
  Report Type: Report from Study
  Country: DE (occurrence: DE)
  Receive Date: 20250421
  Receipt Date: 20250421
  Transmission Date: 20250717
  Serious: Yes (Other)
  Sender: PFIZER
  Company Number: DE-SANDOZ-SDZ2025DE022200

PATIENT
  Sex: Female

DRUGS (9)
  1. METHOTREXATE SODIUM [Suspect]
     Active Substance: METHOTREXATE SODIUM
     Route: 065
     Dates: start: 20220210
  2. METHOTREXATE SODIUM [Suspect]
     Active Substance: METHOTREXATE SODIUM
     Route: 065
     Dates: start: 20220421
  3. METHOTREXATE SODIUM [Suspect]
     Active Substance: METHOTREXATE SODIUM
     Route: 065
     Dates: start: 20220728
  4. METHOTREXATE SODIUM [Suspect]
     Active Substance: METHOTREXATE SODIUM
     Route: 065
     Dates: start: 20230330
  5. METHOTREXATE SODIUM [Suspect]
     Active Substance: METHOTREXATE SODIUM
     Route: 065
     Dates: start: 20230721
  6. METHOTREXATE SODIUM [Suspect]
     Active Substance: METHOTREXATE SODIUM
     Route: 065
     Dates: start: 20240213
  7. METHOTREXATE SODIUM [Suspect]
     Active Substance: METHOTREXATE SODIUM
     Route: 065
     Dates: start: 20240724
  8. ERELZI [Suspect]
     Active Substance: ETANERCEPT-SZZS
     Route: 065
     Dates: start: 202306, end: 202308
  9. HULIO [Suspect]
     Active Substance: ADALIMUMAB-FKJP
     Route: 065
     Dates: start: 202202, end: 202204

REACTIONS (1)
  - Basal cell carcinoma [Recovered/Resolved]

NARRATIVE: CASE EVENT DATE: 20240501
